FAERS Safety Report 19854722 (Version 2)
Quarter: 2021Q3

REPORT INFORMATION
  Report Type: Spontaneous
  Country: US (occurrence: US)
  Receive Date: 20210920
  Receipt Date: 20210920
  Transmission Date: 20211014
  Serious: Yes (Other)
  Sender: FDA-Public Use
  Company Number: US-TEVA-2021-US-1953045

PATIENT
  Sex: Male

DRUGS (1)
  1. COPAXONE [Suspect]
     Active Substance: GLATIRAMER ACETATE
     Indication: PRODUCT USED FOR UNKNOWN INDICATION
     Dosage: 17.1429 MILLIGRAM/MILLILITERS DAILY;
     Route: 065
     Dates: start: 2020

REACTIONS (7)
  - Multiple sclerosis relapse [Unknown]
  - Product quality issue [Unknown]
  - Asthenia [Unknown]
  - Balance disorder [Unknown]
  - Immediate post-injection reaction [Unknown]
  - Muscular weakness [Unknown]
  - Limb discomfort [Unknown]

NARRATIVE: CASE EVENT DATE: 202108
